FAERS Safety Report 19238579 (Version 1)
Quarter: 2021Q2

REPORT INFORMATION
  Report Type: Spontaneous
  Country: US (occurrence: US)
  Receive Date: 20210510
  Receipt Date: 20210510
  Transmission Date: 20210717
  Serious: Yes (Hospitalization, Other)
  Sender: FDA-Public Use
  Company Number: US-APOTEX-2021AP011204

PATIENT
  Age: 4 Year
  Sex: Male

DRUGS (1)
  1. FLECAINIDE [Suspect]
     Active Substance: FLECAINIDE
     Indication: PRODUCT USED FOR UNKNOWN INDICATION
     Dosage: 600 MILLIGRAM
     Route: 065

REACTIONS (12)
  - Toxicity to various agents [Unknown]
  - Electrocardiogram QRS complex prolonged [Recovered/Resolved]
  - Haemodynamic instability [Unknown]
  - Mental status changes [Unknown]
  - Exposure via ingestion [Unknown]
  - Ventricular tachycardia [Unknown]
  - Tachyarrhythmia [Unknown]
  - Self-medication [Unknown]
  - Agitation [Recovered/Resolved]
  - Tachycardia [Recovered/Resolved]
  - Arrhythmia [Unknown]
  - Hypotension [Unknown]
